FAERS Safety Report 10133598 (Version 2)
Quarter: 2014Q2

REPORT INFORMATION
  Report Type: Spontaneous
  Country: JP (occurrence: JP)
  Receive Date: 20140428
  Receipt Date: 20140515
  Transmission Date: 20141212
  Serious: Yes (Other)
  Sender: FDA-Public Use
  Company Number: JP-GLAXOSMITHKLINE-B0901713A

PATIENT
  Age: 54 Year
  Sex: Male
  Weight: 66 kg

DRUGS (4)
  1. HEPSERA 10 [Suspect]
     Indication: CHRONIC HEPATITIS B
     Dosage: 10MG PER DAY
     Route: 048
     Dates: start: 20040623, end: 20121016
  2. ZEFIX 100 [Suspect]
     Indication: CHRONIC HEPATITIS B
     Dosage: 100MG PER DAY
     Route: 048
     Dates: start: 200101, end: 20121016
  3. BLOPRESS [Concomitant]
     Indication: HYPERTENSION
     Dosage: 4MG PER DAY
     Route: 048
  4. LAMIVUDINE-HBV [Concomitant]
     Indication: CHRONIC HEPATITIS B

REACTIONS (18)
  - Fanconi syndrome [Recovering/Resolving]
  - Renal tubular disorder [Recovering/Resolving]
  - Osteomalacia [Recovering/Resolving]
  - Renal impairment [Recovering/Resolving]
  - Back pain [Recovering/Resolving]
  - Arthralgia [Recovering/Resolving]
  - Chest pain [Unknown]
  - Renal glycosuria [Unknown]
  - Hypophosphataemia [Unknown]
  - Bone pain [Unknown]
  - Blood alkaline phosphatase increased [Unknown]
  - Beta 2 microglobulin increased [Unknown]
  - Bone scan abnormal [Recovering/Resolving]
  - Hypouricaemia [Unknown]
  - Urine uric acid increased [Unknown]
  - Protein urine [Unknown]
  - Glucose urine present [Unknown]
  - Drug resistance [Unknown]
